FAERS Safety Report 9217434 (Version 1)
Quarter: 2013Q2

REPORT INFORMATION
  Report Type: Report from Study
  Country: US (occurrence: US)
  Receive Date: 20130408
  Receipt Date: 20130408
  Transmission Date: 20140414
  Serious: Yes (Other)
  Sender: FDA-Public Use
  Company Number: US-AMGEN-US364354

PATIENT
  Age: 80 Year
  Sex: Male

DRUGS (17)
  1. DENOSUMAB [Suspect]
     Indication: PROSTATE CANCER
     Dosage: UNK UNK, UNK
     Dates: start: 20060821, end: 20090427
  2. ASCORBIC ACID [Concomitant]
     Dosage: 1000 MG, BID
     Route: 048
  3. ACETAMINOPHEN [Concomitant]
     Dosage: 500 MG, BID
     Route: 048
     Dates: start: 2000
  4. RABEPRAZOLE SODIUM [Concomitant]
     Dosage: 20 MG, BID
     Route: 048
     Dates: start: 2000
  5. METOPROLOL [Concomitant]
     Dosage: 25 MG, QD
     Route: 048
     Dates: start: 1998
  6. CALCIUM [Concomitant]
     Dosage: 1000 MG, QD
     Route: 048
     Dates: start: 20060821
  7. ERGOCALCIFEROL [Concomitant]
     Dosage: 800 MG, QD
     Route: 048
     Dates: start: 20060821
  8. LOTREL [Concomitant]
     Dosage: UNK UNK, PRN
     Route: 054
     Dates: start: 2007
  9. CARVEDILOL [Concomitant]
     Dosage: 20 MG, BID
     Route: 048
     Dates: start: 20071019
  10. SIMVASTATIN [Concomitant]
     Dosage: 40 MG, QD
     Route: 048
     Dates: start: 20071210
  11. OMEPRAZOLE [Concomitant]
     Dosage: 20 MG, QD
     Route: 048
     Dates: start: 20071210
  12. NITROGLYCERIN [Concomitant]
     Dosage: UNK UNK, PRN
     Dates: start: 1974
  13. TAMSULOSIN HCL [Concomitant]
  14. POTASSIUM [Concomitant]
     Dosage: 8 MG, UNK
     Route: 048
     Dates: start: 20080303
  15. FUROSEMIDE [Concomitant]
     Dosage: 20 MG, QD
     Route: 048
     Dates: start: 20080303
  16. AMIODORONE [Concomitant]
     Dosage: 200 MG, PRN
     Route: 048
     Dates: start: 20080414
  17. MEGESTROL [Concomitant]
     Dosage: 40 MG, PRN
     Route: 048
     Dates: start: 20080623

REACTIONS (1)
  - Mouth ulceration [Not Recovered/Not Resolved]
